FAERS Safety Report 6444357-9 (Version None)
Quarter: 2009Q4

REPORT INFORMATION
  Report Type: 
  Country: None (occurrence: None)
  Receive Date: 20091117
  Receipt Date: 20091117
  Transmission Date: 20100525
  Serious: Yes (Other)
  Sender: FDA-Public Use
  Company Number: None

PATIENT
  Age: 52 Year
  Sex: Female
  Weight: 62.5964 kg

DRUGS (1)
  1. METRONIDAZOLE [Suspect]
     Indication: GIARDIASIS
     Dosage: 1/2 TABLET 3 TIMES DAILY PO
     Route: 048
     Dates: start: 20091103, end: 20091113

REACTIONS (6)
  - DECREASED APPETITE [None]
  - JOINT SWELLING [None]
  - NAUSEA [None]
  - OEDEMA PERIPHERAL [None]
  - VOMITING [None]
  - WEIGHT INCREASED [None]
